FAERS Safety Report 23457725 (Version 2)
Quarter: 2024Q1

REPORT INFORMATION
  Report Type: Report from Study
  Country: CA (occurrence: CA)
  Receive Date: 20240130
  Receipt Date: 20240306
  Transmission Date: 20240410
  Serious: Yes (Other)
  Sender: FDA-Public Use
  Company Number: CA-JNJFOC-20231166730

PATIENT
  Age: 25 Year
  Sex: Female

DRUGS (4)
  1. REMICADE [Suspect]
     Active Substance: INFLIXIMAB
     Indication: Ankylosing spondylitis
     Route: 041
  2. REMICADE [Suspect]
     Active Substance: INFLIXIMAB
     Indication: Juvenile idiopathic arthritis
     Route: 041
  3. REMICADE [Suspect]
     Active Substance: INFLIXIMAB
     Route: 041
  4. REMICADE [Suspect]
     Active Substance: INFLIXIMAB
     Route: 041
     Dates: start: 20190624

REACTIONS (8)
  - Ankylosing spondylitis [Not Recovered/Not Resolved]
  - Epiploic appendagitis [Recovering/Resolving]
  - Abdominal pain [Recovering/Resolving]
  - Influenza [Not Recovered/Not Resolved]
  - Arthralgia [Recovered/Resolved]
  - Exposure during pregnancy [Recovered/Resolved]
  - Fatigue [Recovered/Resolved]
  - Muscle spasms [Recovering/Resolving]

NARRATIVE: CASE EVENT DATE: 20230101
